FAERS Safety Report 26181450 (Version 1)
Quarter: 2025Q4

REPORT INFORMATION
  Report Type: Spontaneous
  Country: EU (occurrence: EU)
  Receive Date: 20251221
  Receipt Date: 20251221
  Transmission Date: 20260118
  Serious: Yes (Death, Hospitalization, Congenital Anomaly, Other)
  Sender: ELI LILLY AND COMPANY
  Company Number: EU-EMB-M202411049-1

PATIENT
  Sex: Female

DRUGS (18)
  1. DULOXETINE HYDROCHLORIDE [Suspect]
     Active Substance: DULOXETINE HYDROCHLORIDE
     Indication: Anxiety disorder
     Dosage: 90 MG, DAILY
     Route: 064
  2. DULOXETINE HYDROCHLORIDE [Suspect]
     Active Substance: DULOXETINE HYDROCHLORIDE
     Indication: Anxiety disorder
     Dosage: 90 MG, DAILY
     Route: 064
  3. DULOXETINE HYDROCHLORIDE [Suspect]
     Active Substance: DULOXETINE HYDROCHLORIDE
     Dosage: 120 MG, DAILY
     Route: 064
     Dates: start: 202411, end: 202508
  4. DULOXETINE HYDROCHLORIDE [Suspect]
     Active Substance: DULOXETINE HYDROCHLORIDE
     Dosage: 120 MG, DAILY
     Route: 064
     Dates: start: 202411, end: 202508
  5. LYRICA [Suspect]
     Active Substance: PREGABALIN
     Indication: Anxiety disorder
     Dosage: 300 MG, DAILY
     Route: 064
     Dates: start: 202411, end: 202508
  6. LYRICA [Suspect]
     Active Substance: PREGABALIN
     Indication: Anxiety disorder
     Dosage: 300 MG, DAILY
     Route: 064
     Dates: start: 202411, end: 202508
  7. LYRICA [Suspect]
     Active Substance: PREGABALIN
     Dosage: 150 MG, DAILY
     Route: 064
  8. LYRICA [Suspect]
     Active Substance: PREGABALIN
     Dosage: 150 MG, DAILY
     Route: 064
  9. METOPROLOL FUMARATE [Suspect]
     Active Substance: METOPROLOL FUMARATE
     Indication: Postural orthostatic tachycardia syndrome
     Dosage: 23.75 MG, DAILY
     Route: 064
     Dates: start: 202502, end: 202508
  10. METOPROLOL FUMARATE [Suspect]
     Active Substance: METOPROLOL FUMARATE
     Indication: Postural orthostatic tachycardia syndrome
     Dosage: 23.75 MG, DAILY
     Route: 064
     Dates: start: 202502, end: 202508
  11. METFORMIN [Suspect]
     Active Substance: METFORMIN HYDROCHLORIDE
     Indication: Type 2 diabetes mellitus
     Dosage: 2000 MG, DAILY
     Route: 064
     Dates: start: 202411, end: 202508
  12. METFORMIN [Suspect]
     Active Substance: METFORMIN HYDROCHLORIDE
     Indication: Type 2 diabetes mellitus
     Dosage: 2000 MG, DAILY
     Route: 064
     Dates: start: 202411, end: 202508
  13. METFORMIN [Suspect]
     Active Substance: METFORMIN HYDROCHLORIDE
     Dosage: 1000 MG, DAILY
     Route: 064
  14. METFORMIN [Suspect]
     Active Substance: METFORMIN HYDROCHLORIDE
     Dosage: 1000 MG, DAILY
     Route: 064
  15. TAVOR (LORAZEPAM) [Suspect]
     Active Substance: LORAZEPAM
     Indication: Anxiety disorder
     Dosage: 2.5 MG, PRN
     Route: 064
  16. TAVOR (LORAZEPAM) [Suspect]
     Active Substance: LORAZEPAM
     Indication: Anxiety disorder
     Dosage: 2.5 MG, PRN
     Route: 064
  17. IVABRADINE [Concomitant]
     Active Substance: IVABRADINE
     Indication: Postural orthostatic tachycardia syndrome
     Dosage: 5 MG, DAILY
     Route: 064
     Dates: start: 202411, end: 202502
  18. IVABRADINE [Concomitant]
     Active Substance: IVABRADINE
     Indication: Postural orthostatic tachycardia syndrome
     Dosage: 5 MG, DAILY
     Route: 064
     Dates: start: 202411, end: 202502

REACTIONS (3)
  - Foetal death [Fatal]
  - Microcephaly [Not Recovered/Not Resolved]
  - Foetal exposure during pregnancy [Unknown]

NARRATIVE: CASE EVENT DATE: 20250801
